FAERS Safety Report 7527858-1 (Version None)
Quarter: 2011Q2

REPORT INFORMATION
  Report Type: 
  Country: None (occurrence: None)
  Receive Date: 20110607
  Receipt Date: 20110601
  Transmission Date: 20111010
  Serious: Yes (Life-Threatening, Other)
  Sender: FDA-Public Use
  Company Number: GB-SANOFI-AVENTIS-2011SA034558

PATIENT
  Age: 74 Year
  Sex: Female

DRUGS (5)
  1. ASPIRIN [Suspect]
     Indication: PERICARDITIS
     Route: 065
  2. HEPARIN SODIUM [Suspect]
     Indication: PERICARDITIS
     Route: 042
  3. CLOPIDOGREL BISULFATE [Suspect]
     Indication: PERICARDITIS
     Route: 065
  4. ATENOLOL [Suspect]
     Indication: PERICARDITIS
     Route: 065
  5. TENECTEPLASE [Suspect]
     Indication: PERICARDITIS
     Route: 065

REACTIONS (8)
  - CARDIAC ARREST [None]
  - PULSELESS ELECTRICAL ACTIVITY [None]
  - CARDIAC TAMPONADE [None]
  - TACHYCARDIA [None]
  - HYPOTENSION [None]
  - PERICARDIAL HAEMORRHAGE [None]
  - SHOCK [None]
  - ANURIA [None]
